FAERS Safety Report 5489043-7 (Version None)
Quarter: 2007Q4

REPORT INFORMATION
  Report Type: 
  Country: None (occurrence: None)
  Receive Date: 20071018
  Receipt Date: 20071012
  Transmission Date: 20080405
  Serious: Yes (Other)
  Sender: FDA-Public Use
  Company Number: PHNU2007DE03445

PATIENT
  Sex: Male

DRUGS (2)
  1. BRISERIN [Suspect]
  2. BRISERIN-N [Suspect]

REACTIONS (1)
  - PARKINSONISM [None]
